FAERS Safety Report 10524868 (Version 1)
Quarter: 2014Q4

REPORT INFORMATION
  Report Type: Spontaneous
  Country: US (occurrence: None)
  Receive Date: 20141015
  Receipt Date: 20141015
  Transmission Date: 20150528
  Serious: Yes (Other)
  Sender: FDA-Public Use
  Company Number: None

PATIENT
  Age: 39 Year
  Sex: Female
  Weight: 60.78 kg

DRUGS (1)
  1. VIVITROL [Suspect]
     Active Substance: NALTREXONE
     Indication: DRUG DEPENDENCE
     Dosage: 28 DAY SHOT 1 TIME INTO THE MUSCLE
     Route: 030
     Dates: start: 20140925, end: 20141014

REACTIONS (6)
  - Apathy [None]
  - Depressed mood [None]
  - Asthenia [None]
  - Suicidal ideation [None]
  - Decreased appetite [None]
  - Depression [None]

NARRATIVE: CASE EVENT DATE: 20140925
